FAERS Safety Report 15892024 (Version 1)
Quarter: 2019Q1

REPORT INFORMATION
  Report Type: Spontaneous
  Country: PL (occurrence: PL)
  Receive Date: 20190130
  Receipt Date: 20190130
  Transmission Date: 20190417
  Serious: No
  Sender: FDA-Public Use
  Company Number: PL-IPSEN-CABO-18012233

PATIENT
  Age: 71 Year

DRUGS (1)
  1. CABOMETYX [Suspect]
     Active Substance: CABOZANTINIB S-MALATE
     Indication: PRODUCT USED FOR UNKNOWN INDICATION
     Dosage: UNK
     Dates: start: 201702

REACTIONS (10)
  - Confusional state [Recovered/Resolved]
  - Apathy [Unknown]
  - Fatigue [Unknown]
  - Disturbance in attention [Unknown]
  - Blood pressure abnormal [Unknown]
  - Decreased appetite [Unknown]
  - Headache [Unknown]
  - Altered state of consciousness [Unknown]
  - Drug intolerance [Unknown]
  - Hyperhidrosis [Unknown]
